FAERS Safety Report 8021510-4 (Version None)
Quarter: 2011Q4

REPORT INFORMATION
  Report Type: 
  Country: None (occurrence: None)
  Receive Date: 20111230
  Receipt Date: 20111209
  Transmission Date: 20120403
  Serious: Yes (Hospitalization)
  Sender: FDA-Public Use
  Company Number: JPI-P-018679

PATIENT
  Age: 40 Year
  Sex: Male

DRUGS (1)
  1. XYREM [Suspect]
     Indication: NARCOLEPSY
     Dosage: 4.5 GM (2.25 GM, 2 IN 1 D), ORAL, (UNKNOWN), ORAL, 9 GM (4.5 GM, 2 IN 1 D), ORAL
     Route: 048
     Dates: start: 20100910

REACTIONS (2)
  - MESENTERITIS [None]
  - ECONOMIC PROBLEM [None]
